FAERS Safety Report 4270766-2 (Version None)
Quarter: 2004Q1

REPORT INFORMATION
  Report Type: 
  Country: None (occurrence: None)
  Receive Date: 20040114
  Receipt Date: 20031226
  Transmission Date: 20041129
  Serious: Yes (Hospitalization)
  Sender: FDA-Public Use
  Company Number: ES-ROCHE-355644

PATIENT
  Age: 61 Year
  Sex: Female

DRUGS (2)
  1. CAPECITABINE [Suspect]
     Indication: COLORECTAL CANCER METASTATIC
     Dosage: INTERMITTENT DAILY THERAPY OF THREE WEEKS TREATMENT AND ONE WEEK REST
     Route: 048
     Dates: start: 20031104, end: 20031126
  2. OXALIPLATIN [Suspect]
     Indication: COLORECTAL CANCER METASTATIC
     Route: 042
     Dates: start: 20031104, end: 20031126

REACTIONS (9)
  - ANOREXIA [None]
  - ASTHENIA [None]
  - DIARRHOEA [None]
  - HYPOKALAEMIA [None]
  - HYPONATRAEMIA [None]
  - MUCOSAL INFLAMMATION [None]
  - NAUSEA [None]
  - PYREXIA [None]
  - VOMITING [None]
